FAERS Safety Report 21983942 (Version 2)
Quarter: 2023Q1

REPORT INFORMATION
  Report Type: Report from Study
  Country: US (occurrence: None)
  Receive Date: 20230213
  Receipt Date: 20230219
  Transmission Date: 20230417
  Serious: Yes (Hospitalization)
  Sender: FDA-Public Use
  Company Number: US-ROCHE-3219378

PATIENT
  Age: 41 Year
  Sex: Male
  Weight: 86.5 kg

DRUGS (28)
  1. CEVOSTAMAB [Suspect]
     Active Substance: CEVOSTAMAB
     Indication: Plasma cell myeloma recurrent
     Dosage: START/END DATE OF MOST RECENT DOSE OF STUDY DRUG?PRIOR TO AE ON 10/NOV/2022, DOSE LAST STUDY DRUG AD
     Route: 042
     Dates: start: 20221109
  2. TOCILIZUMAB [Suspect]
     Active Substance: TOCILIZUMAB
     Indication: Plasma cell myeloma recurrent
     Dosage: START DATE OF MOST RECENT DOSE OF STUDY DRUG PRIOR TO AE: 11/NOV/2022
     Route: 065
     Dates: start: 20221111
  3. DIPHENHYDRAMINE [Concomitant]
     Active Substance: DIPHENHYDRAMINE
     Dosage: 25-50 MG
  4. DEXAMETHASONE [Concomitant]
     Active Substance: DEXAMETHASONE
     Indication: Neoplasm malignant
     Dosage: 20 MG (1 HOUR PRE CEVOSTAMAB)
     Route: 042
  5. DEXAMETHASONE [Concomitant]
     Active Substance: DEXAMETHASONE
     Indication: Premedication
     Route: 065
  6. BORTEZOMIB [Concomitant]
     Active Substance: BORTEZOMIB
     Indication: Neoplasm malignant
  7. BORTEZOMIB [Concomitant]
     Active Substance: BORTEZOMIB
     Route: 065
  8. BORTEZOMIB [Concomitant]
     Active Substance: BORTEZOMIB
     Route: 065
  9. CYCLOPHOSPHAMIDE [Concomitant]
     Active Substance: CYCLOPHOSPHAMIDE
     Indication: Neoplasm malignant
  10. CYCLOPHOSPHAMIDE [Concomitant]
     Active Substance: CYCLOPHOSPHAMIDE
     Route: 065
  11. ATIVAN [Concomitant]
     Active Substance: LORAZEPAM
     Route: 048
     Dates: start: 20210331, end: 20221130
  12. SENNA [Concomitant]
     Active Substance: SENNA LEAF\SENNOSIDES\SENNOSIDES A AND B
     Indication: Constipation
     Route: 048
     Dates: start: 20210121
  13. SENNA [Concomitant]
     Active Substance: SENNA LEAF\SENNOSIDES\SENNOSIDES A AND B
     Route: 048
     Dates: start: 20180411, end: 20221115
  14. ACYCLOVIR [Concomitant]
     Active Substance: ACYCLOVIR
     Dosage: GIVEN FOR PROPHYLAXIS YES
     Route: 048
     Dates: start: 20200321
  15. ACYCLOVIR [Concomitant]
     Active Substance: ACYCLOVIR
     Dosage: GIVEN FOR PROPHYLAXIS YES
     Route: 048
     Dates: start: 20180320
  16. LENALIDOMIDE [Concomitant]
     Active Substance: LENALIDOMIDE
     Indication: Neoplasm malignant
  17. LENALIDOMIDE [Concomitant]
     Active Substance: LENALIDOMIDE
     Route: 065
  18. PREDNISONE [Concomitant]
     Active Substance: PREDNISONE
     Indication: Neoplasm malignant
  19. CYTOXAN [Concomitant]
     Active Substance: CYCLOPHOSPHAMIDE
     Indication: Neoplasm malignant
  20. SELINEXOR [Concomitant]
     Active Substance: SELINEXOR
     Indication: Neoplasm malignant
  21. VALACYCLOVIR HYDROCHLORIDE [Concomitant]
     Active Substance: VALACYCLOVIR HYDROCHLORIDE
     Route: 048
     Dates: start: 20200722
  22. EMOLLIENT (CREAM) [Concomitant]
     Indication: Eczema
     Dosage: UNKNOWN DOSE
     Route: 061
     Dates: start: 20210412
  23. SODIUM BICARBONATE [Concomitant]
     Active Substance: SODIUM BICARBONATE
     Route: 048
     Dates: start: 20221113
  24. ACETAMINOPHEN [Concomitant]
     Active Substance: ACETAMINOPHEN
     Indication: Pyrexia
     Route: 048
     Dates: start: 20220204
  25. ACETAMINOPHEN [Concomitant]
     Active Substance: ACETAMINOPHEN
     Dosage: 500-1000 MG
     Route: 048
  26. ROBITUSSIN (UNITED STATES) [Concomitant]
     Indication: Cough
     Route: 048
     Dates: start: 20221223, end: 20230111
  27. VALACYCLOVIR [Concomitant]
     Active Substance: VALACYCLOVIR HYDROCHLORIDE
     Route: 048
     Dates: start: 20200722
  28. CAMPHOR;MENTHOL [Concomitant]
     Indication: Pruritus

REACTIONS (2)
  - Cytokine release syndrome [Recovered/Resolved]
  - Febrile neutropenia [Not Recovered/Not Resolved]

NARRATIVE: CASE EVENT DATE: 20221111
